FAERS Safety Report 8778681 (Version 1)
Quarter: 2012Q4

REPORT INFORMATION
  Report Type: 
  Country: TR (occurrence: TR)
  Receive Date: 20120913
  Receipt Date: 20120913
  Transmission Date: 20130627
  Serious: Yes (Death)
  Sender: FDA-Public Use
  Company Number: TR-ROCHE-1118360

PATIENT
  Age: 62 Year
  Sex: Male
  Weight: 60 kg

DRUGS (1)
  1. XELODA [Suspect]
     Indication: COLON CANCER
     Dosage: 3 tabs in the morning + 3 tabs in the evening
     Route: 048
     Dates: start: 20120611, end: 20120710

REACTIONS (1)
  - Disease progression [Fatal]
